FAERS Safety Report 5374135-3 (Version None)
Quarter: 2007Q2

REPORT INFORMATION
  Report Type: 
  Country: None (occurrence: None)
  Receive Date: 20070627
  Receipt Date: 20070613
  Transmission Date: 20071010
  Serious: Yes (Death, Hospitalization)
  Sender: FDA-Public Use
  Company Number: GXKR2007BE05090

PATIENT
  Age: 82 Year
  Sex: Female

DRUGS (15)
  1. METHYLPREDNISOLONE [Suspect]
     Indication: TEMPORAL ARTERITIS
     Dosage: SEE IMAGE
  2. METHYLPREDNISOLONE [Suspect]
     Indication: TEMPORAL ARTERITIS
     Dosage: SEE IMAGE
  3. METHYLPREDNISOLONE [Suspect]
     Indication: TEMPORAL ARTERITIS
     Dosage: SEE IMAGE
  4. CALCIUM (NCH) (CALCIUM) UNKNOWN [Suspect]
     Dosage: 1000 MG
  5. ALENDRONATE (NGX) (ALENDRONATE) UNKNOWN [Suspect]
     Dosage: 70 MG, QW
  6. PHENPROCOUMON (NGX) (PHENPROCOUMON) UNKNOWN [Suspect]
  7. VITAMIN D (DERGOCALCIFEROL) [Suspect]
     Dosage: 800 IU
  8. LISINOPRIL [Concomitant]
  9. FUROSEMIDE [Concomitant]
  10. CELIPROLOL (CELIPROLOL) [Concomitant]
  11. CITALOPRAM HYDROBROMIDE [Concomitant]
  12. ESOMEPRAZOLE (ESOMEPRAZOLE) [Concomitant]
  13. VITAMINS (NO INGREDIENTS/SUBSTANCES) [Concomitant]
  14. MAGNESIUM SUPPLEMENTS (MAGNESIUM ) [Concomitant]
  15. HEPARIN [Concomitant]

REACTIONS (17)
  - BLOOD CALCIUM INCREASED [None]
  - BLOOD UREA INCREASED [None]
  - BONE DENSITY DECREASED [None]
  - C-REACTIVE PROTEIN INCREASED [None]
  - CALCIPHYLAXIS [None]
  - DECREASED APPETITE [None]
  - ECCHYMOSIS [None]
  - FATIGUE [None]
  - GENERAL PHYSICAL CONDITION [None]
  - PAIN IN EXTREMITY [None]
  - PIGMENTATION DISORDER [None]
  - PROTEIN S DECREASED [None]
  - SERUM FERRITIN INCREASED [None]
  - SKIN NECROSIS [None]
  - SOFT TISSUE NECROSIS [None]
  - TOE AMPUTATION [None]
  - WHITE BLOOD CELL COUNT INCREASED [None]
